FAERS Safety Report 8844430 (Version 1)
Quarter: 2012Q4

REPORT INFORMATION
  Report Type: Spontaneous
  Country: FR (occurrence: None)
  Receive Date: 20121012
  Receipt Date: 20121012
  Transmission Date: 20130627
  Serious: Yes (Hospitalization)
  Sender: FDA-Public Use
  Company Number: FR-2012-3389

PATIENT
  Age: 63 Year
  Sex: Male

DRUGS (2)
  1. NAVELBINE [Suspect]
     Indication: LUNG ADENOCARCINOMA
     Route: 042
     Dates: start: 20111004, end: 20111004
  2. CISPLATIN [Suspect]
     Route: 042

REACTIONS (3)
  - Renal failure [None]
  - Septic shock [None]
  - Febrile bone marrow aplasia [None]
